FAERS Safety Report 8135360-1 (Version None)
Quarter: 2012Q1

REPORT INFORMATION
  Report Type: 
  Country: None (occurrence: None)
  Receive Date: 20120214
  Receipt Date: 20120206
  Transmission Date: 20120608
  Serious: Yes (Other)
  Sender: FDA-Public Use
  Company Number: US-BAYER-2011-047520

PATIENT
  Age: 20 Year
  Sex: Female
  Weight: 113.38 kg

DRUGS (13)
  1. VITAMIN D [Concomitant]
     Dosage: 5000 IU, BID
     Route: 048
  2. METFORMIN HCL [Concomitant]
  3. YASMIN [Suspect]
     Indication: PREMENSTRUAL SYNDROME
     Dosage: UNK
     Route: 048
     Dates: start: 20040101, end: 20110101
  4. LAMICTAL [Concomitant]
  5. T3 SR [Concomitant]
     Dosage: 15 U, OM
  6. ACTOPLUS MET [Concomitant]
     Dosage: 15MG/850MG, OM
  7. ACETAMINOPHEN [Concomitant]
  8. DROSPIRENONE AND ETHINYL ESTRADIOL [Suspect]
     Indication: PREMENSTRUAL SYNDROME
     Dosage: UNK
     Route: 048
     Dates: start: 20040101, end: 20110101
  9. NSAID'S [Concomitant]
  10. ZINC SULFATE [Concomitant]
     Dosage: 5 ML
     Route: 048
  11. ALBUTEROL [Concomitant]
  12. ANTIBIOTICS [Concomitant]
  13. IODINE PLUSH CAP [Concomitant]

REACTIONS (8)
  - CHOLECYSTITIS ACUTE [None]
  - ABDOMINAL PAIN UPPER [None]
  - PSYCHOLOGICAL TRAUMA [None]
  - CHOLELITHIASIS [None]
  - EMOTIONAL DISTRESS [None]
  - FEAR [None]
  - ANXIETY [None]
  - ANHEDONIA [None]
